FAERS Safety Report 25152983 (Version 1)
Quarter: 2025Q2

REPORT INFORMATION
  Report Type: Spontaneous
  Country: US (occurrence: US)
  Receive Date: 20250403
  Receipt Date: 20250403
  Transmission Date: 20250717
  Serious: No
  Sender: ABBVIE
  Company Number: US-ABBVIE-6204286

PATIENT
  Age: 73 Year
  Sex: Female
  Weight: 76 kg

DRUGS (6)
  1. LUMIGAN [Suspect]
     Active Substance: BIMATOPROST
     Indication: Glaucoma
     Dosage: FORM STRENGTH: 10 MILLILITERS?FREQUENCY TEXT: 1 DROP EACH EYE AT NIGHT
     Route: 047
     Dates: start: 20250327
  2. LUMIGAN [Suspect]
     Active Substance: BIMATOPROST
     Dosage: FORM STRENGTH: 10 MILLILITERS?FREQUENCY TEXT: 1 DROP EACH EYE AT NIGHT, END DATE: 2024
     Route: 047
     Dates: start: 202403
  3. LUMIGAN [Suspect]
     Active Substance: BIMATOPROST
     Dosage: FORM STRENGTH: 10 MILLILITERS?FREQUENCY TEXT: 1 DROP EACH EYE AT NIGHT
     Route: 047
     Dates: start: 2022
  4. LUMIGAN [Suspect]
     Active Substance: BIMATOPROST
     Dosage: FORM STRENGTH: 10 MILLILITERS?FREQUENCY TEXT: 1 DROP EACH EYE AT NIGHT, END DATE: 2024
     Route: 047
     Dates: start: 202406
  5. LUMIGAN [Suspect]
     Active Substance: BIMATOPROST
     Dosage: FORM STRENGTH: 10 MILLILITERS?FREQUENCY TEXT: 1 DROP EACH EYE AT NIGHT, END DATE: 2024
     Route: 047
     Dates: start: 202409
  6. LUMIGAN [Suspect]
     Active Substance: BIMATOPROST
     Dosage: FORM STRENGTH: 10 MILLILITERS?FREQUENCY TEXT: 1 DROP EACH EYE AT NIGHT
     Route: 047
     Dates: start: 202412, end: 20250326

REACTIONS (2)
  - Abnormal sensation in eye [Recovered/Resolved]
  - Eye irritation [Recovered/Resolved]

NARRATIVE: CASE EVENT DATE: 20240101
